FAERS Safety Report 8581608-9 (Version None)
Quarter: 2012Q3

REPORT INFORMATION
  Report Type: 
  Country: None (occurrence: None)
  Receive Date: 20120801
  Receipt Date: 20120801
  Transmission Date: 20120928
  Serious: Yes (Other)
  Sender: FDA-Public Use
  Company Number: None

PATIENT
  Sex: Female

DRUGS (1)
  1. APRI 0.15MG/0.03MG BARR LABS [Suspect]
     Indication: CONTRACEPTION
     Dosage: PO
     Route: 048
     Dates: start: 20120619, end: 20120730

REACTIONS (3)
  - HEADACHE [None]
  - VAGINAL INFLAMMATION [None]
  - OEDEMA PERIPHERAL [None]
